FAERS Safety Report 5884063-2 (Version None)
Quarter: 2008Q3

REPORT INFORMATION
  Report Type: 
  Country: None (occurrence: None)
  Receive Date: 20080911
  Receipt Date: 20080828
  Transmission Date: 20090109
  Serious: No
  Sender: FDA-Public Use
  Company Number: 2008S1015769

PATIENT
  Age: 22 Year
  Sex: Male

DRUGS (1)
  1. TRAMADOL HCL [Suspect]
     Indication: DRUG USE FOR UNKNOWN INDICATION
     Dosage: 800 MG; ORAL
     Route: 048

REACTIONS (3)
  - AGGRESSION [None]
  - INTENTIONAL OVERDOSE [None]
  - SUICIDAL BEHAVIOUR [None]
